FAERS Safety Report 5588171-5 (Version None)
Quarter: 2008Q1

REPORT INFORMATION
  Report Type: 
  Country: None (occurrence: None)
  Receive Date: 20080108
  Receipt Date: 20071224
  Transmission Date: 20080703
  Serious: Yes (Hospitalization)
  Sender: FDA-Public Use
  Company Number: 2007002546

PATIENT
  Age: 50 Year
  Sex: Male

DRUGS (3)
  1. ERLOTINIB (ERLOTINIB HCL) (TABLET) (ERLOTINIB HCL) [Suspect]
     Indication: PANCREATIC CARCINOMA METASTATIC
     Dosage: 100 MG, QD, ORAL
     Route: 048
     Dates: start: 20071206
  2. BEVACIZUMAB [Suspect]
     Indication: PANCREATIC CARCINOMA METASTATIC
     Dosage: Q2W
     Dates: start: 20051206
  3. GEMCITABINE [Suspect]
     Indication: PANCREATIC CARCINOMA METASTATIC
     Dosage: 750 MG, QW
     Dates: start: 20071206

REACTIONS (1)
  - HEPATIC HAEMATOMA [None]
